FAERS Safety Report 8537326-6 (Version None)
Quarter: 2012Q3

REPORT INFORMATION
  Report Type: 
  Country: None (occurrence: None)
  Receive Date: 20120725
  Receipt Date: 20120719
  Transmission Date: 20120928
  Serious: No
  Sender: FDA-Public Use
  Company Number: US-BAYER-2012-072992

PATIENT
  Age: 11 Year
  Sex: Male
  Weight: 44 kg

DRUGS (1)
  1. ALEVE (CAPLET) [Suspect]
     Indication: ANALGESIC THERAPY
     Dosage: 9 DF, UNK
     Route: 048
     Dates: start: 20120718

REACTIONS (2)
  - ABDOMINAL PAIN UPPER [None]
  - DECREASED APPETITE [None]
